FAERS Safety Report 21661501 (Version 1)
Quarter: 2022Q4

REPORT INFORMATION
  Report Type: Report from Study
  Country: US (occurrence: US)
  Receive Date: 20221130
  Receipt Date: 20221130
  Transmission Date: 20230113
  Serious: No
  Sender: FDA-Public Use
  Company Number: US-ABBVIE-4185047

PATIENT
  Sex: Female

DRUGS (7)
  1. SKYRIZI [Suspect]
     Active Substance: RISANKIZUMAB-RZAA
     Indication: Psoriasis
     Dosage: 150 MILLIGRAM
     Route: 058
     Dates: start: 20220728
  2. ACETAMINOPHEN 325 MG TABLET [Concomitant]
     Indication: Product used for unknown indication
  3. IBUPROFEN 200 MG CAPSULE [Concomitant]
     Indication: Product used for unknown indication
  4. CLOBETASOL PROPIONATE 0.05 % GEL [Concomitant]
     Indication: Product used for unknown indication
     Dosage: 0.05%
  5. COLLAGEN 125-740MG CAPSULE [Concomitant]
     Indication: Product used for unknown indication
     Dosage: 125-740MG
  6. D MANNOSE 99 ^A POWDER [Concomitant]
     Indication: Product used for unknown indication
  7. APPLE CIDER VINEGAR 300 MG TABLET [Concomitant]
     Indication: Product used for unknown indication

REACTIONS (2)
  - Decreased appetite [Not Recovered/Not Resolved]
  - Nausea [Not Recovered/Not Resolved]
